FAERS Safety Report 5763730-5 (Version None)
Quarter: 2008Q2

REPORT INFORMATION
  Report Type: 
  Country: None (occurrence: None)
  Receive Date: 20080610
  Receipt Date: 20080603
  Transmission Date: 20081010
  Serious: Yes (Death, Hospitalization)
  Sender: FDA-Public Use
  Company Number: US-ROCHE-568360

PATIENT
  Age: 57 Year
  Sex: Female

DRUGS (10)
  1. PEGASYS [Suspect]
     Indication: HEPATITIS C
     Dosage: FORM: PFS
     Route: 065
  2. RIBAVIRIN [Suspect]
     Indication: HEPATITIS C
     Route: 065
  3. METHADONE HCL [Concomitant]
  4. 1 CONCOMITANT DRUG [Concomitant]
     Dosage: DRUG: NUMEROUS PSYCH DRUGS
  5. CYMBALTA [Concomitant]
  6. KLONOPIN [Concomitant]
  7. LYRICA [Concomitant]
  8. NORCO [Concomitant]
  9. NORCO [Concomitant]
  10. ELAVIL [Concomitant]

REACTIONS (4)
  - DEATH [None]
  - MYOCARDIAL INFARCTION [None]
  - PNEUMONIA [None]
  - RESPIRATORY FAILURE [None]
